FAERS Safety Report 8124956-9 (Version None)
Quarter: 2012Q1

REPORT INFORMATION
  Report Type: 
  Country: None (occurrence: None)
  Receive Date: 20120209
  Receipt Date: 20120130
  Transmission Date: 20120608
  Serious: Yes (Other)
  Sender: FDA-Public Use
  Company Number: US-ROCHE-1038305

PATIENT
  Age: 41 Year
  Sex: Female

DRUGS (2)
  1. XOLAIR [Suspect]
  2. XOLAIR [Suspect]
     Indication: PRODUCT USED FOR UNKNOWN INDICATION

REACTIONS (3)
  - URTICARIA [None]
  - CHEST DISCOMFORT [None]
  - DYSPNOEA [None]
